FAERS Safety Report 5196325-5 (Version None)
Quarter: 2006Q4

REPORT INFORMATION
  Report Type: 
  Country: None (occurrence: None)
  Receive Date: 20061222
  Receipt Date: 20061208
  Transmission Date: 20070319
  Serious: Yes (Life-Threatening, Hospitalization)
  Sender: FDA-Public Use
  Company Number: 2006144055

PATIENT
  Age: 51 Year
  Sex: Male
  Weight: 41 kg

DRUGS (5)
  1. VFEND [Suspect]
     Indication: PNEUMONIA FUNGAL
     Dosage: 600 + 400MG (2 IN 1 D), ORAL - SEE IMAGE
     Route: 048
     Dates: start: 20061114, end: 20061117
  2. VFEND [Suspect]
     Indication: PNEUMONIA FUNGAL
     Dosage: 600 + 400MG (2 IN 1 D), ORAL - SEE IMAGE
     Route: 048
     Dates: start: 20061115
  3. DIFLUCAN [Suspect]
     Indication: PNEUMONIA FUNGAL
     Dosage: 200 MG (1 IN 1D), ORAL
     Route: 048
     Dates: start: 20061111, end: 20061114
  4. MAXIPIME [Concomitant]
  5. MEROPEN (MEROPENEM) [Concomitant]

REACTIONS (4)
  - DRUG INEFFECTIVE [None]
  - INTERSTITIAL LUNG DISEASE [None]
  - LUNG ABSCESS [None]
  - PNEUMOTHORAX [None]
